FAERS Safety Report 6476508-4 (Version None)
Quarter: 2009Q4

REPORT INFORMATION
  Report Type: 
  Country: None (occurrence: None)
  Receive Date: 20091202
  Receipt Date: 20091117
  Transmission Date: 20100525
  Serious: Yes (Life-Threatening, Hospitalization)
  Sender: FDA-Public Use
  Company Number: VAL_00335_2009

PATIENT
  Sex: Male

DRUGS (17)
  1. ROCALTROL [Suspect]
     Indication: DRUG USE FOR UNKNOWN INDICATION
     Dosage: (0.25 MG, ONE TABLET MONDAY TO THURSDAY)
     Dates: start: 20060701
  2. CELLCEPT [Suspect]
     Indication: PROPHYLAXIS AGAINST TRANSPLANT REJECTION
     Dosage: (250 MG BID)
     Dates: start: 20060701
  3. BONIVA [Suspect]
     Indication: DRUG USE FOR UNKNOWN INDICATION
     Dosage: ( 1 DF 1X/MONTH)
     Dates: start: 20060701
  4. FERINJECT [Suspect]
     Indication: ANAEMIA
     Dosage: (1000 MG INTRAVENOUS (NOT OTHERWISE SPECIFIED)
     Route: 042
     Dates: start: 20091106, end: 20091106
  5. BECOZYME C /0074901/ [Concomitant]
  6. PROGRAF [Concomitant]
  7. DACORTIN [Concomitant]
  8. ENALAPRIL [Concomitant]
  9. ZYLORIC /00003301/ [Concomitant]
  10. OMEPRAZOL /00661201/ [Concomitant]
  11. CARDURA [Concomitant]
  12. FOLIC ACID ASPOL [Concomitant]
  13. ARANESP [Concomitant]
  14. ADIRO [Concomitant]
  15. PREVENCOR [Concomitant]
  16. IRON TRIVALENT, ORAL PREPARATIONS [Concomitant]
  17. SODIUM BICARBONATE [Concomitant]

REACTIONS (2)
  - ANAEMIA [None]
  - PULMONARY OEDEMA [None]
